FAERS Safety Report 8547115-4 (Version None)
Quarter: 2012Q3

REPORT INFORMATION
  Report Type: 
  Country: None (occurrence: None)
  Receive Date: 20120727
  Receipt Date: 20120305
  Transmission Date: 20120928
  Serious: No
  Sender: FDA-Public Use
  Company Number: US-ASTRAZENECA-2012SE10708

PATIENT
  Age: 59 Year
  Sex: Female

DRUGS (2)
  1. SEROQUEL [Suspect]
     Indication: DEPRESSION
     Dosage: 50 MG IN THE MORNING, 50 MG AT LUNCHTIME AND 200 MG AT BEDTIME
     Route: 048
  2. SEROQUEL [Suspect]
     Indication: DISSOCIATIVE IDENTITY DISORDER
     Dosage: 50 MG IN THE MORNING, 50 MG AT LUNCHTIME AND 200 MG AT BEDTIME
     Route: 048

REACTIONS (5)
  - OFF LABEL USE [None]
  - NASOPHARYNGITIS [None]
  - INFLUENZA [None]
  - FORMICATION [None]
  - RESTLESSNESS [None]
